FAERS Safety Report 7485747-5 (Version None)
Quarter: 2011Q2

REPORT INFORMATION
  Report Type: 
  Country: None (occurrence: None)
  Receive Date: 20110517
  Receipt Date: 20101214
  Transmission Date: 20111010
  Serious: Yes (Other)
  Sender: FDA-Public Use
  Company Number: US-BAYER-2011-001657

PATIENT
  Age: 56 Year
  Sex: Male
  Weight: 86 kg

DRUGS (18)
  1. ISORDIL [Concomitant]
  2. LISINOPRIL [Concomitant]
  3. LONITEN [Concomitant]
  4. HYDRALAZINE HCL [Concomitant]
  5. CORTISONE [Concomitant]
  6. MAGNEVIST [Suspect]
     Indication: NUCLEAR MAGNETIC RESONANCE IMAGING BRAIN
     Dosage: 20 ML, ONCE
     Route: 042
     Dates: start: 20050603, end: 20050603
  7. LOPRESSOR [Concomitant]
  8. ALBUTEROL [Concomitant]
  9. CATAPRES-TTS-2 [Concomitant]
  10. COUMADIN [Concomitant]
  11. OPTIRAY 350 [Concomitant]
     Indication: ANGIOGRAM
     Dosage: UNK
     Route: 042
     Dates: start: 20050603, end: 20050603
  12. NORVASC [Concomitant]
  13. ZESTRIL [Concomitant]
  14. AMIODARONE HCL [Concomitant]
  15. TOPROL-XL [Concomitant]
  16. EPOGEN [Concomitant]
  17. GADOLINIUM IN UNSPECIFIED DRUG [Suspect]
     Dosage: UNK
     Dates: start: 20041105, end: 20041105
  18. MINOXIDIL [Concomitant]

REACTIONS (14)
  - DRY SKIN [None]
  - SKIN EXFOLIATION [None]
  - SKIN ATROPHY [None]
  - MOBILITY DECREASED [None]
  - PIGMENTATION DISORDER [None]
  - JOINT CONTRACTURE [None]
  - SKIN INDURATION [None]
  - PAIN IN EXTREMITY [None]
  - SKIN TIGHTNESS [None]
  - JOINT RANGE OF MOTION DECREASED [None]
  - NEPHROGENIC SYSTEMIC FIBROSIS [None]
  - MUSCLE TIGHTNESS [None]
  - OEDEMA PERIPHERAL [None]
  - MUSCULOSKELETAL DISORDER [None]
